FAERS Safety Report 12289823 (Version 1)
Quarter: 2016Q2

REPORT INFORMATION
  Report Type: Spontaneous
  Country: US (occurrence: US)
  Receive Date: 20160421
  Receipt Date: 20160421
  Transmission Date: 20160815
  Serious: Yes (Other)
  Sender: FDA-Public Use
  Company Number: US-TEVA-585275USA

PATIENT
  Sex: Male

DRUGS (1)
  1. ANAGRELIDE [Suspect]
     Active Substance: ANAGRELIDE
     Indication: THROMBOCYTOSIS

REACTIONS (2)
  - Platelet count increased [Unknown]
  - Drug ineffective [Recovered/Resolved]

NARRATIVE: CASE EVENT DATE: 2015
